FAERS Safety Report 15347122 (Version 2)
Quarter: 2018Q3

REPORT INFORMATION
  Report Type: Spontaneous
  Country: US (occurrence: US)
  Receive Date: 20180904
  Receipt Date: 20180918
  Transmission Date: 20181010
  Serious: Yes (Death, Other)
  Sender: FDA-Public Use
  Company Number: US-ASTELLAS-2018US038528

PATIENT
  Age: 85 Year
  Sex: Male

DRUGS (1)
  1. LEXISCAN [Suspect]
     Active Substance: REGADENOSON
     Indication: CARDIAC STRESS TEST
     Dosage: UNK, UNKNOWN FREQ.
     Route: 065
     Dates: start: 20160601, end: 20160601

REACTIONS (7)
  - Cholelithiasis [Fatal]
  - Drug administration error [Unknown]
  - Seizure [Fatal]
  - Lethargy [Not Recovered/Not Resolved]
  - Unresponsive to stimuli [Fatal]
  - Cardiac failure congestive [Fatal]
  - Sepsis [Fatal]

NARRATIVE: CASE EVENT DATE: 2016
